FAERS Safety Report 7891890-9 (Version None)
Quarter: 2011Q4

REPORT INFORMATION
  Report Type: 
  Country: None (occurrence: None)
  Receive Date: 20111103
  Receipt Date: 20110811
  Transmission Date: 20120403
  Serious: No
  Sender: FDA-Public Use
  Company Number: US-AMGEN-USASP2011040878

PATIENT
  Age: 46 Year
  Sex: Female

DRUGS (1)
  1. ENBREL [Suspect]
     Indication: RHEUMATOID ARTHRITIS
     Dosage: 50 MG, UNK
     Route: 058
     Dates: start: 20090801

REACTIONS (5)
  - INJECTION SITE HAEMATOMA [None]
  - ARTHRALGIA [None]
  - MUSCULOSKELETAL PAIN [None]
  - MOBILITY DECREASED [None]
  - PAIN IN EXTREMITY [None]
